FAERS Safety Report 15546765 (Version 1)
Quarter: 2018Q4

REPORT INFORMATION
  Report Type: Spontaneous
  Country: US (occurrence: US)
  Receive Date: 20181024
  Receipt Date: 20181024
  Transmission Date: 20190205
  Serious: Yes (Death)
  Sender: FDA-Public Use
  Company Number: None

PATIENT
  Age: 63 Year
  Sex: Male

DRUGS (11)
  1. LISINOPRIL TAB 20MG [Concomitant]
     Active Substance: LISINOPRIL
  2. DIAZEPAM TAB 5MG [Concomitant]
  3. VITAMIN B-1 TAB 100MG [Concomitant]
  4. OXYCODONE TAB 5MG [Concomitant]
     Active Substance: OXYCODONE
  5. FOLIC ACID TAB 1MG [Concomitant]
  6. XIFAXAN [Suspect]
     Active Substance: RIFAXIMIN
     Indication: PRODUCT USED FOR UNKNOWN INDICATION
     Route: 048
  7. COLCRYS TAB 0.6MG [Concomitant]
  8. GENERLAC SOL 10G/15ML [Concomitant]
  9. TRAMADOL HCL TAB 50MG [Concomitant]
  10. PANTOPRAZOLE TAB 40MG [Concomitant]
  11. ALLOPURINOL TAB 100MG [Concomitant]

REACTIONS (1)
  - Death [None]

NARRATIVE: CASE EVENT DATE: 20181021
